FAERS Safety Report 20375358 (Version 1)
Quarter: 2022Q1

REPORT INFORMATION
  Report Type: Spontaneous
  Country: US (occurrence: US)
  Receive Date: 20220125
  Receipt Date: 20220125
  Transmission Date: 20220423
  Serious: Yes (Other)
  Sender: FDA-Public Use
  Company Number: US-CELGENE-USA-20220105606

PATIENT
  Age: 71 Year
  Sex: Female

DRUGS (21)
  1. THALOMID [Suspect]
     Active Substance: THALIDOMIDE
     Indication: Plasma cell myeloma
     Dosage: 100 MILLIGRAM
     Route: 048
     Dates: start: 200703
  2. THALOMID [Suspect]
     Active Substance: THALIDOMIDE
     Dosage: 50 MILLIGRAM
     Route: 048
     Dates: start: 200711
  3. THALOMID [Suspect]
     Active Substance: THALIDOMIDE
     Dosage: 50 MILLIGRAM
     Route: 048
     Dates: start: 20170320
  4. ADVAIR DISKU AER [Concomitant]
     Indication: Product used for unknown indication
     Dosage: 100/50
     Route: 065
  5. ASTEPRO SPR [Concomitant]
     Indication: Product used for unknown indication
     Route: 065
  6. BENADRYL CAP [Concomitant]
     Indication: Product used for unknown indication
     Route: 048
  7. BIOTIN TAB [Concomitant]
     Indication: Product used for unknown indication
     Route: 048
  8. CALCITRIOL CAP [Concomitant]
     Indication: Product used for unknown indication
     Route: 048
  9. GABAPENTIN [Concomitant]
     Active Substance: GABAPENTIN
     Indication: Product used for unknown indication
     Route: 048
  10. GRANISETRON TAB [Concomitant]
     Indication: Product used for unknown indication
     Route: 048
  11. HYDROCHLOROT TAB [Concomitant]
     Indication: Product used for unknown indication
     Route: 048
  12. PAIN RELIEF NOS [Concomitant]
     Active Substance: CAMPHOR (SYNTHETIC)\LEVOMENTHOL\MENTHYL SALICYLATE OR CAMPHOR (SYNTHETIC)\MENTHOL\MENTHYL SALICYLATE
     Indication: Muscle spasms
     Route: 048
  13. MONTELUKAST SODIUM [Concomitant]
     Active Substance: MONTELUKAST SODIUM
     Indication: Product used for unknown indication
     Route: 048
  14. MUCUS RELIEF [Concomitant]
     Active Substance: GUAIFENESIN
     Indication: Product used for unknown indication
     Route: 048
  15. NEPHROCAPS CAP [Concomitant]
     Indication: Product used for unknown indication
     Route: 065
  16. PANTOPRAZOLE TAB [Concomitant]
     Indication: Product used for unknown indication
     Route: 048
  17. ROPINIROLE TAB [Concomitant]
     Indication: Product used for unknown indication
     Route: 048
  18. STOOL SOFTNER CAP [Concomitant]
     Indication: Product used for unknown indication
     Route: 048
  19. TYLENOL TAB [Concomitant]
     Indication: Product used for unknown indication
     Route: 048
  20. WARFARIN TAB [Concomitant]
     Indication: Product used for unknown indication
     Route: 048
  21. WARFARIN TAB [Concomitant]
     Route: 048

REACTIONS (2)
  - Foot fracture [Unknown]
  - Ligament injury [Unknown]

NARRATIVE: CASE EVENT DATE: 20210502
